FAERS Safety Report 7552368-5 (Version None)
Quarter: 2011Q2

REPORT INFORMATION
  Report Type: 
  Country: None (occurrence: None)
  Receive Date: 20110616
  Receipt Date: 20080902
  Transmission Date: 20111010
  Serious: Yes (Other)
  Sender: FDA-Public Use
  Company Number: PHHY2008CA14588

PATIENT
  Sex: Female

DRUGS (4)
  1. RASILEZ [Suspect]
     Dosage: 300 MG, UNK
  2. RASILEZ [Suspect]
     Indication: HYPERTENSION
     Dosage: 150 MG, UNK
  3. PREDNISONE [Concomitant]
     Indication: LIVER TRANSPLANT
  4. CYCLOSPORINE [Concomitant]
     Indication: LIVER TRANSPLANT

REACTIONS (1)
  - HYPERTENSION [None]
